FAERS Safety Report 11723749 (Version 1)
Quarter: 2015Q4

REPORT INFORMATION
  Report Type: Spontaneous
  Country: DE (occurrence: DE)
  Receive Date: 20151111
  Receipt Date: 20151111
  Transmission Date: 20160304
  Serious: Yes (Hospitalization)
  Sender: FDA-Public Use
  Company Number: DE-TEVA-608266GER

PATIENT
  Sex: Male

DRUGS (3)
  1. PRAMIPEXOL-RATIOPHARM TABLETTEN [Suspect]
     Active Substance: PRAMIPEXOLE
     Route: 048
  2. DICLOFENAC RATIOPHARM 75 SL RETARDKAPSELN [Suspect]
     Active Substance: DICLOFENAC
     Dosage: 150 MILLIGRAM DAILY;
     Route: 048
  3. PAROXETIN-RATIOPHARM 20 MG FILMTABLETTEN [Suspect]
     Active Substance: PAROXETINE HYDROCHLORIDE
     Dosage: 20 MILLIGRAM DAILY;
     Route: 048

REACTIONS (1)
  - Wound haemorrhage [Not Recovered/Not Resolved]

NARRATIVE: CASE EVENT DATE: 20151029
